FAERS Safety Report 9957319 (Version 1)
Quarter: 2014Q1

REPORT INFORMATION
  Report Type: Report from Study
  Country: US (occurrence: US)
  Receive Date: 20140304
  Receipt Date: 20140304
  Transmission Date: 20141002
  Serious: No
  Sender: FDA-Public Use
  Company Number: US-ABBVIE-13P-163-1096899-00

PATIENT
  Age: 41 Year
  Sex: Female

DRUGS (8)
  1. HUMIRA [Suspect]
     Indication: PSORIATIC ARTHROPATHY
     Dates: start: 201303
  2. HUMIRA [Suspect]
     Indication: PSORIASIS
  3. XANAX [Concomitant]
     Indication: PRODUCT USED FOR UNKNOWN INDICATION
  4. TYLENOL [Concomitant]
     Indication: PAIN
  5. NAPROXEN [Concomitant]
     Indication: PAIN
  6. VITAMIN D [Concomitant]
     Indication: PRODUCT USED FOR UNKNOWN INDICATION
  7. CLOBETASOL 0.05% [Concomitant]
     Indication: PSORIASIS
  8. STEROID SPRAY [Concomitant]
     Indication: PSORIASIS

REACTIONS (2)
  - Pharyngitis [Not Recovered/Not Resolved]
  - Chest pain [Not Recovered/Not Resolved]
